FAERS Safety Report 5696218-0 (Version None)
Quarter: 2008Q2

REPORT INFORMATION
  Report Type: 
  Country: None (occurrence: None)
  Receive Date: 20080407
  Receipt Date: 20080327
  Transmission Date: 20081010
  Serious: Yes (Hospitalization, Other)
  Sender: FDA-Public Use
  Company Number: MX-PFIZER INC-2008028110

PATIENT
  Sex: Male
  Weight: 48 kg

DRUGS (1)
  1. SUTENT [Suspect]
     Indication: RENAL CELL CARCINOMA
     Route: 048

REACTIONS (3)
  - ABDOMINAL PAIN UPPER [None]
  - HAEMATEMESIS [None]
  - HYPERTHERMIA [None]
